FAERS Safety Report 9388875 (Version 1)
Quarter: 2013Q3

REPORT INFORMATION
  Report Type: Spontaneous
  Country: US (occurrence: US)
  Receive Date: 20130708
  Receipt Date: 20130708
  Transmission Date: 20140515
  Serious: No
  Sender: FDA-Public Use
  Company Number: US-TEVA-416994USA

PATIENT
  Sex: Male

DRUGS (1)
  1. AZILECT [Suspect]
     Dates: start: 201301

REACTIONS (1)
  - Drug ineffective [Not Recovered/Not Resolved]
